FAERS Safety Report 11656938 (Version 4)
Quarter: 2015Q4

REPORT INFORMATION
  Report Type: Spontaneous
  Country: JP (occurrence: JP)
  Receive Date: 20151023
  Receipt Date: 20151028
  Transmission Date: 20160304
  Serious: Yes (Other)
  Sender: FDA-Public Use
  Company Number: JP-BAXTER-2015BAX056858

PATIENT
  Age: 13 Year
  Sex: Male

DRUGS (12)
  1. CELLTOP 25 MG, CAPSULE [Suspect]
     Active Substance: ETOPOSIDE
     Indication: MEDIASTINUM NEOPLASM
     Route: 065
  2. CELLTOP 25 MG, CAPSULE [Suspect]
     Active Substance: ETOPOSIDE
     Route: 065
  3. CARBOPLATIN. [Suspect]
     Active Substance: CARBOPLATIN
     Indication: MEDIASTINUM NEOPLASM
     Route: 065
  4. PACLITAXEL. [Suspect]
     Active Substance: PACLITAXEL
     Route: 065
  5. CARBOPLATIN. [Suspect]
     Active Substance: CARBOPLATIN
     Route: 065
  6. IFEX [Suspect]
     Active Substance: IFOSFAMIDE
     Indication: MEDIASTINUM NEOPLASM
     Route: 065
  7. BLEOMYCIN [Suspect]
     Active Substance: BLEOMYCIN SULFATE
     Indication: MEDIASTINUM NEOPLASM
     Route: 065
  8. IFEX [Suspect]
     Active Substance: IFOSFAMIDE
     Dosage: POSTOPERATIVE THERAPY
     Route: 065
  9. BLEOMYCIN [Suspect]
     Active Substance: BLEOMYCIN SULFATE
     Route: 065
  10. CELLTOP 25 MG, CAPSULE [Suspect]
     Active Substance: ETOPOSIDE
     Route: 065
  11. CISPLATIN. [Suspect]
     Active Substance: CISPLATIN
     Indication: MEDIASTINUM NEOPLASM
     Route: 065
  12. PACLITAXEL. [Suspect]
     Active Substance: PACLITAXEL
     Indication: MEDIASTINUM NEOPLASM
     Route: 065

REACTIONS (2)
  - Osteosarcoma [Recovering/Resolving]
  - Second primary malignancy [Recovering/Resolving]
